FAERS Safety Report 9188478 (Version 2)
Quarter: 2013Q1

REPORT INFORMATION
  Report Type: Spontaneous
  Country: US (occurrence: US)
  Receive Date: 20130325
  Receipt Date: 20130327
  Transmission Date: 20140127
  Serious: Yes (Death, Hospitalization, Other)
  Sender: FDA-Public Use
  Company Number: PHHY2013US028698

PATIENT
  Sex: Male
  Weight: 74 kg

DRUGS (22)
  1. CUBICIN [Suspect]
     Indication: SKIN INFECTION
     Dosage: 475 MG, Q48H AFTER DIALYSIS
     Dates: start: 20130112, end: 20130114
  2. CUBICIN [Suspect]
     Indication: STAPHYLOCOCCAL BACTERAEMIA
     Dosage: 800 MG, Q48H AFTER DIALYSIS
     Dates: start: 20130114, end: 20130124
  3. CUBICIN [Suspect]
     Dosage: 700 MG X1
     Dates: start: 20130125, end: 20130125
  4. CUBICIN [Suspect]
     Dosage: 475 MG, Q48H AFTER DIALYSIS
     Dates: start: 20130128, end: 20130218
  5. CUBICIN [Suspect]
     Dosage: 450 MG, Q48H
     Dates: start: 20130218, end: 20130220
  6. CUBICIN [Suspect]
     Dosage: 675 MG, Q48H
     Dates: start: 20130222, end: 20130225
  7. RIFAMPICIN [Suspect]
     Indication: STAPHYLOCOCCAL BACTERAEMIA
     Dosage: 300 MG, BID
     Route: 048
     Dates: start: 20130115
  8. ZYVOX [Concomitant]
  9. ALLOPURINOL [Concomitant]
  10. CETIRIZINE [Concomitant]
  11. GABAPENTIN [Concomitant]
  12. LANTUS [Concomitant]
  13. MIDODRINE [Concomitant]
  14. SEVELAMER [Concomitant]
  15. VITAMIN D [Concomitant]
  16. ASPIRIN [Concomitant]
  17. FENOFIBRATE [Concomitant]
  18. NOVOLOG [Concomitant]
  19. METOPROLOL [Concomitant]
  20. PANTOPRAZOLE [Concomitant]
  21. VITAMIN B12 [Concomitant]
  22. DARBEPOETIN ALFA [Concomitant]

REACTIONS (5)
  - Death [Fatal]
  - Bacteraemia [Unknown]
  - Mental status changes [Unknown]
  - Pathogen resistance [Unknown]
  - Antimicrobial susceptibility test resistant [Unknown]
